FAERS Safety Report 7691715-0 (Version None)
Quarter: 2011Q3

REPORT INFORMATION
  Report Type: 
  Country: None (occurrence: None)
  Receive Date: 20110818
  Receipt Date: 20110810
  Transmission Date: 20111222
  Serious: Yes (Other)
  Sender: FDA-Public Use
  Company Number: US-GLAXOSMITHKLINE-A0930596A

PATIENT
  Age: 64 Year
  Sex: Male

DRUGS (6)
  1. ADVAIR DISKUS 100/50 [Suspect]
     Indication: ASTHMA
     Dosage: 1PUFF TWICE PER DAY
     Route: 055
  2. PROVENTIL [Concomitant]
  3. FLUTICASONE PROPIONATE [Concomitant]
  4. LABETALOL HCL [Concomitant]
  5. NEXIUM [Concomitant]
  6. DICLOFEN [Concomitant]

REACTIONS (3)
  - PRODUCT QUALITY ISSUE [None]
  - ASTHMA [None]
  - DRUG INEFFECTIVE [None]
